FAERS Safety Report 6340021-5 (Version None)
Quarter: 2009Q3

REPORT INFORMATION
  Report Type: 
  Country: None (occurrence: None)
  Receive Date: 20090903
  Receipt Date: 20090825
  Transmission Date: 20100115
  Serious: Yes (Other)
  Sender: FDA-Public Use
  Company Number: US-ABBOTT-09P-163-0593551-00

PATIENT
  Sex: Female
  Weight: 79.45 kg

DRUGS (10)
  1. HUMIRA [Suspect]
     Indication: SYSTEMIC LUPUS ERYTHEMATOSUS
     Route: 058
     Dates: start: 20050101, end: 20050101
  2. HUMIRA [Suspect]
     Route: 058
     Dates: start: 20050101, end: 20050101
  3. HUMIRA [Suspect]
     Route: 058
     Dates: start: 20070101, end: 20070101
  4. HUMIRA [Suspect]
     Route: 058
     Dates: start: 20070101, end: 20080101
  5. HUMIRA [Suspect]
     Route: 058
     Dates: start: 20080101
  6. AVELOX [Suspect]
     Indication: SINUSITIS
     Dosage: UNKNOWN
     Route: 048
     Dates: start: 20080701, end: 20080701
  7. SYNTHROID [Concomitant]
     Indication: HYPOTHYROIDISM
     Route: 048
  8. LEFLUNOMIDE [Concomitant]
     Indication: SYSTEMIC LUPUS ERYTHEMATOSUS
     Route: 048
     Dates: start: 20040101
  9. ZOCOR [Concomitant]
     Indication: BLOOD TRIGLYCERIDES INCREASED
     Route: 048
  10. AMITRIPTYLINE [Concomitant]
     Indication: INSOMNIA
     Route: 048

REACTIONS (6)
  - ANAPHYLACTIC REACTION [None]
  - DRUG INEFFECTIVE [None]
  - DYSPNOEA [None]
  - LOSS OF CONSCIOUSNESS [None]
  - SINUSITIS [None]
  - SKIN IRRITATION [None]
